FAERS Safety Report 7820236-7 (Version None)
Quarter: 2011Q4

REPORT INFORMATION
  Report Type: 
  Country: None (occurrence: None)
  Receive Date: 20111013
  Receipt Date: 20110930
  Transmission Date: 20120403
  Serious: Yes (Life-Threatening, Hospitalization, Other)
  Sender: FDA-Public Use
  Company Number: AUR-APL-2010-00451

PATIENT
  Age: 81 Year
  Sex: Male
  Weight: 58 kg

DRUGS (7)
  1. GALENIC /SPIRONOLACTONE/FUROSEMIDE (OSYROL-LASIX) [Concomitant]
  2. GLIMEPIRIDE [Suspect]
     Indication: TYPE 2 DIABETES MELLITUS
     Dosage: (2 MG, 1 D), ORAL
     Route: 048
     Dates: start: 20020101, end: 20080813
  3. METFORMIN HCL [Suspect]
     Indication: TYPE 2 DIABETES MELLITUS
     Dosage: 2000 MG (1000 MG, 2 IN 1 D), ORAL
     Route: 048
     Dates: start: 20000101, end: 20080813
  4. ISOSORBIDE DINITRATE [Concomitant]
  5. RUDOTEL (MEDAZEPAM) [Concomitant]
  6. FERROUS GLYCINE SULFATE (FERROUS GLYCINE SULFATE) [Concomitant]
  7. ATENOLOL [Suspect]
     Indication: HYPERTENSION
     Dosage: (50 MG, 1 D), ORAL
     Route: 048
     Dates: start: 19900101, end: 20080819

REACTIONS (4)
  - HYPOGLYCAEMIA [None]
  - DRUG INTERACTION [None]
  - PERSONALITY CHANGE [None]
  - AGITATION [None]
